FAERS Safety Report 25274486 (Version 1)
Quarter: 2025Q2

REPORT INFORMATION
  Report Type: Spontaneous
  Country: US (occurrence: None)
  Receive Date: 20250506
  Receipt Date: 20250506
  Transmission Date: 20250716
  Serious: Yes (Death)
  Sender: FDA-CTU
  Company Number: None

PATIENT
  Age: 67 Year
  Sex: Female

DRUGS (8)
  1. CREON [Suspect]
     Active Substance: PANCRELIPASE AMYLASE\PANCRELIPASE LIPASE\PANCRELIPASE PROTEASE
     Indication: Enzyme activity decreased
     Dosage: 2 CAPS THREE TIMES DAILY WITH MEALT  TID ORAL
     Route: 048
     Dates: start: 20231211, end: 20250504
  2. DRONABINOL [Concomitant]
     Active Substance: DRONABINOL
  3. extampza er [Concomitant]
  4. OXYCODONE [Concomitant]
     Active Substance: OXYCODONE
  5. VITAMIN D2 [Concomitant]
     Active Substance: ERGOCALCIFEROL
  6. CALCIUM [Concomitant]
     Active Substance: CALCIUM
  7. SENNA [Concomitant]
     Active Substance: SENNOSIDES
  8. TYLENOL [Concomitant]
     Active Substance: ACETAMINOPHEN

REACTIONS (2)
  - Pancreatic carcinoma [None]
  - Malignant neoplasm progression [None]

NARRATIVE: CASE EVENT DATE: 20250504
